FAERS Safety Report 10044660 (Version 2)
Quarter: 2014Q2

REPORT INFORMATION
  Report Type: Spontaneous
  Country: US (occurrence: US)
  Receive Date: 20140328
  Receipt Date: 20140429
  Transmission Date: 20141212
  Serious: Yes (Hospitalization, Other)
  Sender: FDA-Public Use
  Company Number: US-TEVA-471636USA

PATIENT
  Sex: Female

DRUGS (7)
  1. DULOXETINE [Suspect]
     Indication: BIPOLAR DISORDER
  2. FANAPT [Concomitant]
     Dosage: 20 MILLIGRAM DAILY;
     Route: 048
  3. HANTIS [Concomitant]
  4. GABAPENTIN [Concomitant]
  5. BACLOFEN [Concomitant]
  6. ANOVLAR [Concomitant]
  7. VICTOSA [Concomitant]

REACTIONS (5)
  - Bipolar disorder [Recovered/Resolved]
  - Dyspnoea [Recovered/Resolved]
  - Tremor [Recovered/Resolved]
  - Insomnia [Recovered/Resolved]
  - Mood swings [Recovered/Resolved]
